FAERS Safety Report 9840724 (Version 3)
Quarter: 2014Q2

REPORT INFORMATION
  Report Type: Report from Study
  Country: CO (occurrence: CO)
  Receive Date: 20140124
  Receipt Date: 20140402
  Transmission Date: 20141212
  Serious: Yes (Hospitalization)
  Sender: FDA-Public Use
  Company Number: PHHY2014CO007911

PATIENT
  Age: 51 Year
  Sex: Female

DRUGS (6)
  1. GILENYA [Suspect]
     Indication: MULTIPLE SCLEROSIS
     Dosage: 0.5 MG, QD
     Route: 048
     Dates: start: 20130921, end: 201311
  2. GILENYA [Suspect]
     Dosage: 0.5 MG, QD
     Route: 048
     Dates: start: 201312
  3. THYROXINE [Concomitant]
     Indication: THYROID DISORDER
     Dosage: 1 DF, QD
     Route: 048
  4. CENTRUM [Concomitant]
  5. OMEPRAZOLE [Concomitant]
     Dosage: 1 DF, TID
     Route: 048
  6. CLONAZEPAM [Concomitant]
     Indication: INSOMNIA
     Dosage: 1 DF, QD
     Route: 048

REACTIONS (6)
  - Loss of consciousness [Recovered/Resolved]
  - Headache [Not Recovered/Not Resolved]
  - Pain in extremity [Unknown]
  - Arthralgia [Unknown]
  - Nausea [Not Recovered/Not Resolved]
  - Alopecia [Not Recovered/Not Resolved]
